FAERS Safety Report 24227829 (Version 2)
Quarter: 2025Q1

REPORT INFORMATION
  Report Type: Spontaneous
  Country: CA (occurrence: CA)
  Receive Date: 20240820
  Receipt Date: 20250114
  Transmission Date: 20250409
  Serious: Yes (Disabling, Other)
  Sender: TAKEDA
  Company Number: CA-TAKEDA-2024TUS082433

PATIENT
  Age: 77 Year
  Sex: Female

DRUGS (4)
  1. MESALAMINE [Suspect]
     Active Substance: MESALAMINE
     Indication: Abdominal discomfort
  2. MESALAMINE [Suspect]
     Active Substance: MESALAMINE
     Indication: Abdominal discomfort
  3. POLYETHYLENE GLYCOL 3350\POTASSIUM CHLORIDE\SODIUM BICARBONATE\SODIUM [Suspect]
     Active Substance: POLYETHYLENE GLYCOL 3350\POTASSIUM CHLORIDE\SODIUM BICARBONATE\SODIUM CHLORIDE\SODIUM SULFATE
     Indication: Bowel preparation
     Dates: start: 202306, end: 202306
  4. ROSUVASTATIN [Concomitant]
     Active Substance: ROSUVASTATIN
     Dosage: 20 MILLIGRAM, QD

REACTIONS (19)
  - Abdominal discomfort [Unknown]
  - Alanine aminotransferase abnormal [Unknown]
  - Anxiety [Not Recovered/Not Resolved]
  - Bedridden [Unknown]
  - C-reactive protein abnormal [Unknown]
  - Cardiac failure congestive [Recovered/Resolved]
  - Change of bowel habit [Unknown]
  - Diarrhoea [Recovered/Resolved]
  - Diverticulitis [Unknown]
  - Drug hypersensitivity [Unknown]
  - Dyspnoea [Unknown]
  - Gastrointestinal infection [Unknown]
  - Gastrointestinal tract irritation [Unknown]
  - Haematochezia [Unknown]
  - Injury [Unknown]
  - Malaise [Unknown]
  - Mucous stools [Recovered/Resolved]
  - Serum ferritin abnormal [Unknown]
  - Vomiting [Recovered/Resolved]

NARRATIVE: CASE EVENT DATE: 20230601
